FAERS Safety Report 22013702 (Version 1)
Quarter: 2023Q1

REPORT INFORMATION
  Report Type: Spontaneous
  Country: US (occurrence: US)
  Receive Date: 20230221
  Receipt Date: 20230221
  Transmission Date: 20230418
  Serious: Yes (Other)
  Sender: FDA-Public Use
  Company Number: US-BEH-2023155429

PATIENT
  Sex: Male

DRUGS (6)
  1. AFSTYLA ANTIHEMOPHILIC FACTOR (RECOMBINANT), SINGLE CHAIN [Suspect]
     Active Substance: ANTIHEMOPHILIC FACTOR, HUMAN RECOMBINANT
     Indication: Factor VIII deficiency
     Dosage: 2500 INTERNATIONAL UNIT, BIW (MONDAY AND THURSDAY)
     Route: 042
     Dates: start: 20211101
  2. AFSTYLA ANTIHEMOPHILIC FACTOR (RECOMBINANT), SINGLE CHAIN [Suspect]
     Active Substance: ANTIHEMOPHILIC FACTOR, HUMAN RECOMBINANT
     Indication: Factor VIII deficiency
     Dosage: 2500 INTERNATIONAL UNIT, BIW (MONDAY AND THURSDAY)
     Route: 042
     Dates: start: 20211101
  3. AFSTYLA ANTIHEMOPHILIC FACTOR (RECOMBINANT), SINGLE CHAIN [Suspect]
     Active Substance: ANTIHEMOPHILIC FACTOR, HUMAN RECOMBINANT
     Indication: Prophylaxis
     Dosage: 2500 INTERNATIONAL UNIT, PRN
     Route: 042
     Dates: start: 20211101
  4. AFSTYLA ANTIHEMOPHILIC FACTOR (RECOMBINANT), SINGLE CHAIN [Suspect]
     Active Substance: ANTIHEMOPHILIC FACTOR, HUMAN RECOMBINANT
     Indication: Prophylaxis
     Dosage: 2500 INTERNATIONAL UNIT, PRN
     Route: 042
     Dates: start: 20211101
  5. AFSTYLA ANTIHEMOPHILIC FACTOR (RECOMBINANT), SINGLE CHAIN [Suspect]
     Active Substance: ANTIHEMOPHILIC FACTOR, HUMAN RECOMBINANT
     Indication: Haemorrhage
  6. AFSTYLA ANTIHEMOPHILIC FACTOR (RECOMBINANT), SINGLE CHAIN [Suspect]
     Active Substance: ANTIHEMOPHILIC FACTOR, HUMAN RECOMBINANT
     Indication: Haemorrhage

REACTIONS (1)
  - Haemarthrosis [Unknown]
